FAERS Safety Report 5459850-5 (Version None)
Quarter: 2007Q3

REPORT INFORMATION
  Report Type: 
  Country: None (occurrence: None)
  Receive Date: 20070810
  Receipt Date: 20070711
  Transmission Date: 20080115
  Serious: Yes (Life-Threatening)
  Sender: FDA-Public Use
  Company Number: 200711402BWH

PATIENT
  Age: 70 Year
  Sex: Male

DRUGS (1)
  1. TRASYLOL [Suspect]
     Indication: HEART TRANSPLANT
     Dosage: 10 ML, ONCE, INTRAVENOUS
     Route: 042
     Dates: start: 20070401

REACTIONS (2)
  - ANAPHYLACTIC SHOCK [None]
  - CARDIAC ARREST [None]
